FAERS Safety Report 16567227 (Version 1)
Quarter: 2019Q3

REPORT INFORMATION
  Report Type: Report from Study
  Country: JP (occurrence: JP)
  Receive Date: 20190712
  Receipt Date: 20190712
  Transmission Date: 20191004
  Serious: Yes (Hospitalization, Other)
  Sender: FDA-Public Use
  Company Number: JP-ACTELION-A-CH2016-140387

PATIENT
  Age: 19 Year
  Sex: Female

DRUGS (25)
  1. EPOPROSTENOL ACT [Suspect]
     Active Substance: EPOPROSTENOL
     Dosage: 54.4 NG/KG, PER MIN
     Route: 042
     Dates: start: 20150203, end: 20150513
  2. EPOPROSTENOL ACT [Suspect]
     Active Substance: EPOPROSTENOL
     Dosage: 93 NG/KG, PER MIN
     Route: 042
     Dates: start: 20151105
  3. EPOPROSTENOL ACT [Suspect]
     Active Substance: EPOPROSTENOL
     Dosage: 16.04 NG/KG, PER MIN
     Route: 042
     Dates: start: 20131005, end: 20131111
  4. EPOPROSTENOL ACT [Suspect]
     Active Substance: EPOPROSTENOL
     Dosage: 53 NG/KG, PER MIN
     Route: 042
     Dates: start: 20141111, end: 20150202
  5. TADALAFIL. [Concomitant]
     Active Substance: TADALAFIL
     Indication: PRODUCT USED FOR UNKNOWN INDICATION
  6. EPOPROSTENOL ACT [Suspect]
     Active Substance: EPOPROSTENOL
     Dosage: 30 NG/KG, PER MIN
     Route: 042
     Dates: start: 20140205, end: 20140304
  7. EPOPROSTENOL ACT [Suspect]
     Active Substance: EPOPROSTENOL
     Indication: PULMONARY ARTERIAL HYPERTENSION
     Dosage: 69.8 NG/KG, PER MIN
     Route: 042
     Dates: start: 20150526
  8. EPOPROSTENOL ACT [Suspect]
     Active Substance: EPOPROSTENOL
     Dosage: 12.7 NG/KG, PER MIN
     Route: 042
     Dates: start: 20130905, end: 20131004
  9. EPOPROSTENOL ACT [Suspect]
     Active Substance: EPOPROSTENOL
     Dosage: 26.85 NG/KG, PER MIN
     Route: 042
     Dates: start: 20140112, end: 20140204
  10. EPOPROSTENOL ACT [Suspect]
     Active Substance: EPOPROSTENOL
     Dosage: 37 NG/KG, PER MIN
     Route: 042
     Dates: start: 20140405, end: 20140506
  11. EPOPROSTENOL ACT [Suspect]
     Active Substance: EPOPROSTENOL
     Dosage: 67.4 NG/KG, PER MIN
     Route: 042
     Dates: start: 20150514, end: 20150525
  12. EPOPROSTENOL ACT [Suspect]
     Active Substance: EPOPROSTENOL
     Dosage: 104.2 NG/KG, PER MIN
     Route: 042
  13. EPOPROSTENOL ACT [Suspect]
     Active Substance: EPOPROSTENOL
     Dosage: 93.2 NG/KG, PER MIN
     Route: 042
     Dates: start: 20160805
  14. EPOPROSTENOL ACT [Suspect]
     Active Substance: EPOPROSTENOL
     Dosage: 44.3 NG/KG, PER MIN
     Route: 042
     Dates: start: 20140607, end: 20140706
  15. EPOPROSTENOL ACT [Suspect]
     Active Substance: EPOPROSTENOL
     Dosage: 48 NG/KG, PER MIN
     Route: 042
     Dates: start: 20140707, end: 20140804
  16. BERAPROST SODIUM [Concomitant]
     Active Substance: BERAPROST SODIUM
     Indication: PRODUCT USED FOR UNKNOWN INDICATION
  17. TORASEMIDE [Concomitant]
     Active Substance: TORSEMIDE
     Indication: PRODUCT USED FOR UNKNOWN INDICATION
  18. OXYGEN. [Concomitant]
     Active Substance: OXYGEN
     Indication: PRODUCT USED FOR UNKNOWN INDICATION
  19. EPOPROSTENOL ACT [Suspect]
     Active Substance: EPOPROSTENOL
     Dosage: 1.0 NG/KG, PER MIN
     Route: 042
     Dates: start: 20130805, end: 20130904
  20. EPOPROSTENOL ACT [Suspect]
     Active Substance: EPOPROSTENOL
     Dosage: 18.9 NG/KG, PER MIN
     Route: 042
     Dates: start: 20131112, end: 20131211
  21. EPOPROSTENOL ACT [Suspect]
     Active Substance: EPOPROSTENOL
     Dosage: 24 NG/KG, PER MIN
     Route: 042
     Dates: start: 20131212, end: 20140111
  22. EPOPROSTENOL ACT [Suspect]
     Active Substance: EPOPROSTENOL
     Dosage: 33.09 NG/KG, PER MIN
     Route: 042
     Dates: start: 20140305, end: 20140404
  23. AMBRISENTAN [Concomitant]
     Active Substance: AMBRISENTAN
     Indication: PRODUCT USED FOR UNKNOWN INDICATION
  24. EPOPROSTENOL ACT [Suspect]
     Active Substance: EPOPROSTENOL
     Dosage: 41.9 NG/KG, PER MIN
     Route: 042
     Dates: start: 20140507, end: 20140606
  25. EPOPROSTENOL ACT [Suspect]
     Active Substance: EPOPROSTENOL
     Dosage: 50.9 NG/KG, PER MIN
     Route: 042
     Dates: start: 20140805, end: 20141110

REACTIONS (4)
  - Platelet count decreased [Recovering/Resolving]
  - Lung transplant [Unknown]
  - Cardiac failure [Recovering/Resolving]
  - Therapeutic product effect incomplete [Recovered/Resolved]

NARRATIVE: CASE EVENT DATE: 20150123
